FAERS Safety Report 5502489-3 (Version None)
Quarter: 2007Q4

REPORT INFORMATION
  Report Type: 
  Country: None (occurrence: None)
  Receive Date: 20071030
  Receipt Date: 20071018
  Transmission Date: 20080405
  Serious: Yes (Hospitalization)
  Sender: FDA-Public Use
  Company Number: GB-PFIZER INC-2007088600

PATIENT
  Sex: Female
  Weight: 76 kg

DRUGS (1)
  1. SU-011,248 [Suspect]
     Indication: RENAL CELL CARCINOMA STAGE UNSPECIFIED
     Route: 048

REACTIONS (3)
  - DYSPNOEA [None]
  - HYPOCALCAEMIA [None]
  - HYPOMAGNESAEMIA [None]
